FAERS Safety Report 8829684 (Version 2)
Quarter: 2014Q3

REPORT INFORMATION
  Report Type: Report from Study
  Country: US (occurrence: US)
  Receive Date: 20121008
  Receipt Date: 20140903
  Transmission Date: 20150326
  Serious: Yes (Death)
  Sender: FDA-Public Use
  Company Number: US-ROCHE-1122932

PATIENT
  Age: 28 Year
  Sex: Female

DRUGS (2)
  1. RITUXAN [Suspect]
     Active Substance: RITUXIMAB
     Indication: ACUTE MYELOID LEUKAEMIA
     Route: 042
     Dates: start: 20080131, end: 20080206
  2. RITUXAN [Suspect]
     Active Substance: RITUXIMAB
     Indication: ACUTE PROMYELOCYTIC LEUKAEMIA
     Dosage: DATE OF FIRST TREATMENT FOR CURRENT COURSE: 01/02/2008
     Route: 065

REACTIONS (3)
  - Shock [Fatal]
  - Bacteraemia [Fatal]
  - Respiratory distress [Fatal]

NARRATIVE: CASE EVENT DATE: 20080226
